FAERS Safety Report 6013456-8 (Version None)
Quarter: 2008Q4

REPORT INFORMATION
  Report Type: 
  Country: None (occurrence: None)
  Receive Date: 20081218
  Receipt Date: 20081218
  Transmission Date: 20090506
  Serious: Yes (Other)
  Sender: FDA-Public Use
  Company Number: None

PATIENT
  Age: 28 Year
  Sex: Female
  Weight: 99.7913 kg

DRUGS (7)
  1. NEXIUM [Suspect]
     Indication: CROHN'S DISEASE
     Dosage: 40 MG 2X/DAY PO
     Route: 048
     Dates: start: 20081113, end: 20081217
  2. NEXIUM [Suspect]
     Indication: GASTROOESOPHAGEAL REFLUX DISEASE
     Dosage: 40 MG 2X/DAY PO
     Route: 048
     Dates: start: 20081113, end: 20081217
  3. EFFEXOR XR [Concomitant]
  4. AZATHIOPRINE [Concomitant]
  5. TRAZODONE HCL [Concomitant]
  6. CITALOPRAM [Concomitant]
  7. REQUIP [Concomitant]

REACTIONS (1)
  - HEADACHE [None]
